FAERS Safety Report 21734540 (Version 10)
Quarter: 2025Q4

REPORT INFORMATION
  Report Type: Spontaneous
  Country: US (occurrence: US)
  Receive Date: 20221215
  Receipt Date: 20251002
  Transmission Date: 20260118
  Serious: Yes (Hospitalization, Other)
  Sender: PFIZER
  Company Number: US-PFIZER INC-202201368936

PATIENT
  Age: 71 Year
  Sex: Female
  Weight: 103.4 kg

DRUGS (6)
  1. IBRANCE [Suspect]
     Active Substance: PALBOCICLIB
     Indication: Breast cancer metastatic
     Dosage: DAILY 3 WEEKS ON, 1 WEEK OFF (EVERY 3/4 WEEKS (DAYS 1-21))
     Route: 048
     Dates: start: 20201209
  2. IBRANCE [Suspect]
     Active Substance: PALBOCICLIB
     Dosage: 125 MG, CYCLIC (TAKE 1 TABLET (125 MG TOTAL) DAILY ON FOR 21 DAYS OFF FOR 7 DAYS)
     Route: 048
     Dates: start: 20221021
  3. ELIQUIS [Suspect]
     Active Substance: APIXABAN
     Indication: Pulmonary embolism
     Dosage: 5 MG, 2X/DAY
  4. ELIQUIS [Suspect]
     Active Substance: APIXABAN
     Dosage: 2.5 MG, 2X/DAY (CUTS 5 MG DOSE IN HALF)
  5. FEMARA [Suspect]
     Active Substance: LETROZOLE
     Dosage: UNK, DAILY
     Dates: start: 20201209
  6. XGEVA [Suspect]
     Active Substance: DENOSUMAB
     Indication: Metastases to bone
     Dosage: UNK, MONTHLY
     Dates: start: 20201215

REACTIONS (23)
  - Anaemia [Unknown]
  - Gastrointestinal haemorrhage [Unknown]
  - Duodenal ulcer [Unknown]
  - Pulmonary embolism [Recovering/Resolving]
  - Condition aggravated [Recovering/Resolving]
  - Haemoglobin decreased [Unknown]
  - Renal disorder [Unknown]
  - Cough [Unknown]
  - Mental disorder [Unknown]
  - Rotator cuff syndrome [Not Recovered/Not Resolved]
  - Lymphadenopathy [Unknown]
  - Thyroid mass [Unknown]
  - White blood cell count decreased [Unknown]
  - Haematocrit decreased [Unknown]
  - Platelet count decreased [Unknown]
  - Troponin increased [Recovering/Resolving]
  - Full blood count abnormal [Unknown]
  - Metabolic function test abnormal [Unknown]
  - Tooth fracture [Unknown]
  - Haemoglobin decreased [Not Recovered/Not Resolved]
  - Brain fog [Unknown]
  - Treatment noncompliance [Unknown]
  - Off label use [Unknown]

NARRATIVE: CASE EVENT DATE: 20210616
